FAERS Safety Report 24788281 (Version 1)
Quarter: 2024Q4

REPORT INFORMATION
  Report Type: Report from Study
  Country: CA (occurrence: CA)
  Receive Date: 20241230
  Receipt Date: 20241230
  Transmission Date: 20250114
  Serious: Yes (Other)
  Sender: ROCHE
  Company Number: ROCHE-10000164093

PATIENT
  Sex: Male

DRUGS (3)
  1. ERIVEDGE [Suspect]
     Active Substance: VISMODEGIB
     Indication: Basal cell carcinoma
     Route: 048
     Dates: start: 201205
  2. ERIVEDGE [Suspect]
     Active Substance: VISMODEGIB
     Dosage: DRUG DOSE FIRST ADMINISTERED IS 150 MG MILLIGRAM(S)?MOREDOSAGEINFO IS ON HOLD
     Route: 048
     Dates: end: 2021
  3. ERIVEDGE [Suspect]
     Active Substance: VISMODEGIB
     Dosage: DRUG DOSE FIRST ADMINISTERED IS 150 MG MILLIGRAM(S)
     Route: 048
     Dates: start: 2021, end: 2024

REACTIONS (1)
  - Basal cell carcinoma [Unknown]
